FAERS Safety Report 8005196-0 (Version None)
Quarter: 2011Q4

REPORT INFORMATION
  Report Type: 
  Country: None (occurrence: None)
  Receive Date: 20111223
  Receipt Date: 20111220
  Transmission Date: 20120403
  Serious: Yes (Death, Other)
  Sender: FDA-Public Use
  Company Number: PHHY2011NL098157

PATIENT
  Sex: Female

DRUGS (4)
  1. ZOMETA [Suspect]
     Dosage: 4 MG/5ML 1X PER 84 DAYS IV IN 30 MINUTES
     Dates: start: 20110817
  2. ZOMETA [Suspect]
     Dosage: 4 MG/5ML 1X PER 84 DAYS IV IN 30 MINUTES
     Dates: start: 20111107
  3. CHEMOTHERAPEUTICS [Concomitant]
  4. ZOMETA [Suspect]
     Indication: BREAST CANCER METASTATIC
     Dosage: 4 MG/5ML 1X PER 84 DAYS IV IN 30 MINUTES
     Dates: start: 20090202

REACTIONS (4)
  - DEATH [None]
  - NEOPLASM PROGRESSION [None]
  - METASTASES TO LIVER [None]
  - NEOPLASM MALIGNANT [None]
